FAERS Safety Report 4324849-9 (Version None)
Quarter: 2004Q1

REPORT INFORMATION
  Report Type: 
  Country: None (occurrence: None)
  Receive Date: 20040322
  Receipt Date: 20040305
  Transmission Date: 20041129
  Serious: Yes (Hospitalization)
  Sender: FDA-Public Use
  Company Number: DSA_24072_2004

PATIENT
  Age: 93 Year
  Sex: Female

DRUGS (1)
  1. LORAZEPAM [Suspect]
     Dates: end: 20040119

REACTIONS (5)
  - ANOREXIA [None]
  - CONFUSIONAL STATE [None]
  - OVERDOSE [None]
  - SOMNOLENCE [None]
  - SPEECH DISORDER [None]
